FAERS Safety Report 10162309 (Version 2)
Quarter: 2014Q2

REPORT INFORMATION
  Report Type: Report from Study
  Country: FR (occurrence: FR)
  Receive Date: 20140509
  Receipt Date: 20140603
  Transmission Date: 20141212
  Serious: Yes (Death, Other)
  Sender: FDA-Public Use
  Company Number: FR-SA-2014SA059755

PATIENT
  Sex: 0

DRUGS (1)
  1. EVOLTRA [Suspect]
     Indication: PRODUCT USED FOR UNKNOWN INDICATION
     Route: 042

REACTIONS (3)
  - Myocardial infarction [Fatal]
  - Cardiac failure [Unknown]
  - Pneumonia [Unknown]
